FAERS Safety Report 5308416-6 (Version None)
Quarter: 2007Q2

REPORT INFORMATION
  Report Type: 
  Country: None (occurrence: None)
  Receive Date: 20070423
  Receipt Date: 20070423
  Transmission Date: 20071010
  Serious: Yes (Hospitalization)
  Sender: FDA-Public Use
  Company Number: None

PATIENT
  Age: 76 Year
  Sex: Male
  Weight: 73.4827 kg

DRUGS (12)
  1. WARFARIN SODIUM [Suspect]
     Indication: ATRIAL FIBRILLATION
     Dosage: 2 MG DAILY PO
     Route: 048
     Dates: start: 20061222, end: 20070420
  2. CALCIUM ACETATE [Concomitant]
  3. FERROUS SULTATE [Concomitant]
  4. FOLIC ACID [Concomitant]
  5. LISINOPRIL [Concomitant]
  6. METOPROLOL SUCCINATE [Concomitant]
  7. M.V.I. [Concomitant]
  8. OMEPRAZOLE [Concomitant]
  9. PAROXETINE [Concomitant]
  10. SIMVASTATIN [Concomitant]
  11. POTASSIUM ACETATE [Concomitant]
  12. VIT D [Concomitant]

REACTIONS (1)
  - DRUG TOXICITY [None]
